FAERS Safety Report 7110244-6 (Version None)
Quarter: 2010Q4

REPORT INFORMATION
  Report Type: 
  Country: None (occurrence: None)
  Receive Date: 20101117
  Receipt Date: 20101117
  Transmission Date: 20110411
  Serious: No
  Sender: FDA-Public Use
  Company Number: None

PATIENT
  Sex: Female
  Weight: 87.0906 kg

DRUGS (2)
  1. SIMVASTATIN [Suspect]
     Indication: BLOOD CHOLESTEROL INCREASED
     Dosage: ONE TAB QD PO
     Route: 048
  2. CRESTOR [Suspect]
     Dosage: 5 MG ONE TAB QD PO
     Route: 048

REACTIONS (4)
  - FATIGUE [None]
  - JOINT STIFFNESS [None]
  - MUSCULAR WEAKNESS [None]
  - PAIN [None]
